FAERS Safety Report 16023982 (Version 3)
Quarter: 2019Q2

REPORT INFORMATION
  Report Type: Report from Study
  Country: CA (occurrence: CA)
  Receive Date: 20190301
  Receipt Date: 20190423
  Transmission Date: 20190711
  Serious: Yes (Other)
  Sender: FDA-Public Use
  Company Number: CA-GLAXOSMITHKLINE-CA2019GSK036774

PATIENT
  Sex: Male

DRUGS (2)
  1. MEPOLIZUMAB [Suspect]
     Active Substance: MEPOLIZUMAB
     Dosage: 100 MG, Z (MONTHLY)
     Route: 042
  2. MEPOLIZUMAB [Suspect]
     Active Substance: MEPOLIZUMAB
     Indication: ASTHMA
     Dosage: 100 MG, Z (MONTHLY)
     Route: 042

REACTIONS (9)
  - Dysphagia [Unknown]
  - Cough [Unknown]
  - Mucosal discolouration [Unknown]
  - Rhonchi [Unknown]
  - Oropharyngeal pain [Unknown]
  - Middle insomnia [Unknown]
  - Breath sounds abnormal [Unknown]
  - Respiratory tract infection [Unknown]
  - Dyspnoea [Unknown]
